FAERS Safety Report 8104331-3 (Version None)
Quarter: 2012Q1

REPORT INFORMATION
  Report Type: 
  Country: None (occurrence: None)
  Receive Date: 20120130
  Receipt Date: 20120118
  Transmission Date: 20120608
  Serious: Yes (Hospitalization)
  Sender: FDA-Public Use
  Company Number: 1000027374

PATIENT
  Age: 71 Year
  Sex: Female

DRUGS (3)
  1. NEBIVOLOL HCL [Suspect]
     Indication: HYPERTENSION
     Dosage: 5 MG (5 MG, 1 IN 1 D), ORAL
     Route: 048
     Dates: start: 20040101, end: 20110901
  2. ARIMIDEX [Suspect]
     Indication: BREAST CANCER
     Dosage: 1 MG (1 MG, 1 IN 1 D), ORAL
     Route: 048
     Dates: start: 20050901, end: 20110601
  3. LEVOTHYROXINE SODIUM [Concomitant]

REACTIONS (5)
  - HEPATIC CIRRHOSIS [None]
  - ASTHENIA [None]
  - JAUNDICE [None]
  - ASCITES [None]
  - HEPATIC STEATOSIS [None]
